FAERS Safety Report 4907038-6 (Version None)
Quarter: 2006Q1

REPORT INFORMATION
  Report Type: 
  Country: None (occurrence: None)
  Receive Date: 20060203
  Receipt Date: 20060123
  Transmission Date: 20060701
  Serious: Yes (Hospitalization, Other)
  Sender: FDA-Public Use
  Company Number: HQWYE498224JAN06

PATIENT
  Age: 64 Year
  Sex: Male
  Weight: 60.84 kg

DRUGS (7)
  1. RAPAMUNE [Suspect]
     Indication: PROPHYLAXIS AGAINST TRANSPLANT REJECTION
     Dosage: SEE IMAGE
     Dates: start: 20050127, end: 20050320
  2. RAPAMUNE [Suspect]
     Indication: PROPHYLAXIS AGAINST TRANSPLANT REJECTION
     Dosage: SEE IMAGE
     Dates: start: 20050901, end: 20051101
  3. RAPAMUNE [Suspect]
     Indication: PROPHYLAXIS AGAINST TRANSPLANT REJECTION
     Dosage: SEE IMAGE
     Dates: start: 20051101, end: 20051101
  4. RAPAMUNE [Suspect]
     Indication: PROPHYLAXIS AGAINST TRANSPLANT REJECTION
     Dosage: SEE IMAGE
     Dates: start: 20051101
  5. ZENAPAX [Concomitant]
  6. TACROLIMUS (TACROLIMUS) [Concomitant]
  7. CORTICOSTEROIDS NOS (CORTICOSTEROID NOS) [Concomitant]

REACTIONS (9)
  - ANAEMIA [None]
  - BODY TEMPERATURE INCREASED [None]
  - COMPLICATIONS OF TRANSPLANTED KIDNEY [None]
  - DISEASE RECURRENCE [None]
  - GLOMERULONEPHRITIS PROLIFERATIVE [None]
  - HYDRONEPHROSIS [None]
  - KIDNEY TRANSPLANT REJECTION [None]
  - NECROTISING FASCIITIS [None]
  - PERIRECTAL ABSCESS [None]
